FAERS Safety Report 4597740-0 (Version None)
Quarter: 2005Q1

REPORT INFORMATION
  Report Type: 
  Country: None (occurrence: None)
  Receive Date: 20050303
  Receipt Date: 20050224
  Transmission Date: 20050727
  Serious: Yes (Disabling)
  Sender: FDA-Public Use
  Company Number: US-MERCK-0502USA03320

PATIENT
  Age: 62 Year
  Sex: Female

DRUGS (3)
  1. FOSAMAX [Suspect]
     Indication: OSTEOPOROSIS
     Route: 048
     Dates: start: 20000101
  2. FOSAMAX [Suspect]
     Route: 048
     Dates: start: 20050201
  3. AQUANIL [Concomitant]
     Route: 065

REACTIONS (5)
  - DYSPEPSIA [None]
  - FLATULENCE [None]
  - NAUSEA [None]
  - THROAT IRRITATION [None]
  - VOMITING [None]
